FAERS Safety Report 17236567 (Version 1)
Quarter: 2019Q4

REPORT INFORMATION
  Report Type: Spontaneous
  Country: US (occurrence: US)
  Receive Date: 20191211
  Receipt Date: 20191211
  Transmission Date: 20200122
  Serious: Yes (Hospitalization)
  Sender: FDA-Public Use
  Company Number: None

PATIENT
  Sex: Male

DRUGS (1)
  1. ENTECAVIR 0.5MG TEVA PHARMACEUTICALS USA [Suspect]
     Active Substance: ENTECAVIR
     Indication: IMMUNE SYSTEM DISORDER
     Route: 048
     Dates: start: 20190425

REACTIONS (1)
  - Hospitalisation [None]
